FAERS Safety Report 22132563 (Version 1)
Quarter: 2023Q1

REPORT INFORMATION
  Report Type: Spontaneous
  Country: RO (occurrence: RO)
  Receive Date: 20230323
  Receipt Date: 20230323
  Transmission Date: 20230417
  Serious: Yes (Other)
  Sender: FDA-Public Use
  Company Number: RO-009507513-2302ROU006751

PATIENT
  Age: 50 Year
  Sex: Female
  Weight: 74 kg

DRUGS (2)
  1. PEMBROLIZUMAB [Suspect]
     Active Substance: PEMBROLIZUMAB
     Indication: Malignant melanoma
     Dosage: 200 MILLIGRAM
     Dates: start: 20220815, end: 20230216
  2. PEMBROLIZUMAB [Suspect]
     Active Substance: PEMBROLIZUMAB
     Dosage: 200 MILLIGRAM
     Dates: start: 20230222

REACTIONS (4)
  - Autoimmune thyroiditis [Recovering/Resolving]
  - Uveitis [Recovering/Resolving]
  - Speech disorder [Recovering/Resolving]
  - Hypogeusia [Recovering/Resolving]
